FAERS Safety Report 10594245 (Version 2)
Quarter: 2015Q3

REPORT INFORMATION
  Report Type: Spontaneous
  Country: CA (occurrence: CA)
  Receive Date: 20141119
  Receipt Date: 20150825
  Transmission Date: 20151125
  Serious: Yes (Death, Hospitalization, Other)
  Sender: FDA-Public Use
  Company Number: CA-GILEAD-2014-0122876

PATIENT
  Age: 58 Year
  Sex: Male

DRUGS (13)
  1. ENSURE [Concomitant]
     Active Substance: AMINO ACIDS\DEXTROSE\ELECTROLYTES NOS\SOYBEAN OIL\VITAMINS
  2. MYLAN NITRO [Concomitant]
  3. SENNOSIDES A+B [Concomitant]
     Active Substance: SENNOSIDES A AND B
  4. ACETAMINOPHEN. [Concomitant]
     Active Substance: ACETAMINOPHEN
  5. FUROSEMIDE. [Concomitant]
     Active Substance: FUROSEMIDE
  6. SOVALDI [Suspect]
     Active Substance: SOFOSBUVIR
     Indication: HEPATITIS C
     Dosage: 400 MG, UNK
     Route: 048
     Dates: start: 20140725, end: 20141014
  7. METRONIDAZOLE. [Concomitant]
     Active Substance: METRONIDAZOLE
  8. SPIRONOLACTONE. [Concomitant]
     Active Substance: SPIRONOLACTONE
  9. DEXILANT [Concomitant]
     Active Substance: DEXLANSOPRAZOLE
  10. SIMEPREVIR [Suspect]
     Active Substance: SIMEPREVIR
     Indication: HEPATITIS C
     Dosage: 150 MG, QD
     Route: 048
     Dates: start: 20140725, end: 20141014
  11. QUETIAPINE [Concomitant]
     Active Substance: QUETIAPINE
  12. FLUTICASONE [Concomitant]
     Active Substance: FLUTICASONE\FLUTICASONE PROPIONATE
  13. LACTULOSE. [Concomitant]
     Active Substance: LACTULOSE

REACTIONS (6)
  - Off label use [Unknown]
  - Death [Fatal]
  - Asthenia [Unknown]
  - General physical health deterioration [Unknown]
  - Hepatic failure [Unknown]
  - Hyperbilirubinaemia [Unknown]

NARRATIVE: CASE EVENT DATE: 20141106
